FAERS Safety Report 5027599-9 (Version None)
Quarter: 2006Q2

REPORT INFORMATION
  Report Type: 
  Country: None (occurrence: None)
  Receive Date: 20060616
  Receipt Date: 20060606
  Transmission Date: 20061013
  Serious: Yes (Death)
  Sender: FDA-Public Use
  Company Number: US-KINGPHARMUSA00001-K200600734

PATIENT
  Age: 32 Year
  Sex: Male

DRUGS (5)
  1. KEMADRIN [Suspect]
  2. CLOZAPINE [Suspect]
     Indication: SCHIZOPHRENIA
     Route: 048
     Dates: start: 20030917
  3. OLANZAPINE [Suspect]
  4. DOTHIEPIN HYDROCHLORIDE [Concomitant]
  5. DIAZEPAM [Concomitant]

REACTIONS (14)
  - ARRHYTHMIA [None]
  - BRAIN OEDEMA [None]
  - CARDIOTOXICITY [None]
  - LIP DISCOLOURATION [None]
  - LUNG DISORDER [None]
  - MULTIPLE DRUG OVERDOSE [None]
  - NEUROTOXICITY [None]
  - ORAL DISCHARGE [None]
  - OVERDOSE [None]
  - PULMONARY CONGESTION [None]
  - PULMONARY HAEMORRHAGE [None]
  - PULMONARY OEDEMA [None]
  - SEDATION [None]
  - THERAPEUTIC AGENT TOXICITY [None]
